FAERS Safety Report 9524271 (Version 1)
Quarter: 2013Q3

REPORT INFORMATION
  Report Type: Spontaneous
  Country: US (occurrence: None)
  Receive Date: 20130912
  Receipt Date: 20130912
  Transmission Date: 20140515
  Serious: Yes (Hospitalization, Disabling)
  Sender: FDA-Public Use
  Company Number: None

PATIENT
  Age: 44 None
  Sex: Female

DRUGS (4)
  1. METOCLOPRAMIDE HCL [Suspect]
     Indication: GASTROOESOPHAGEAL REFLUX DISEASE
     Route: 048
     Dates: start: 19980606, end: 20130513
  2. REMERON [Concomitant]
  3. LORAZEPAM [Concomitant]
  4. AMBIEN [Concomitant]

REACTIONS (4)
  - Suicide attempt [None]
  - Insomnia [None]
  - Restlessness [None]
  - Anxiety [None]
